FAERS Safety Report 7993167-X (Version None)
Quarter: 2011Q4

REPORT INFORMATION
  Report Type: 
  Country: None (occurrence: None)
  Receive Date: 20111219
  Receipt Date: 20101025
  Transmission Date: 20120403
  Serious: No
  Sender: FDA-Public Use
  Company Number: US-ASTRAZENECA-2010SE50645

PATIENT
  Age: 75 Year
  Sex: Male
  Weight: 79.4 kg

DRUGS (1)
  1. CRESTOR [Suspect]
     Route: 048
     Dates: start: 20101018

REACTIONS (3)
  - DIZZINESS [None]
  - INFLUENZA LIKE ILLNESS [None]
  - NAUSEA [None]
